FAERS Safety Report 10431955 (Version 3)
Quarter: 2014Q4

REPORT INFORMATION
  Report Type: Spontaneous
  Country: IT (occurrence: IT)
  Receive Date: 20140905
  Receipt Date: 20141219
  Transmission Date: 20150528
  Serious: Yes (Death, Other)
  Sender: FDA-Public Use
  Company Number: IT-BIOGENIDEC-2014BI089924

PATIENT
  Age: 46 Year
  Sex: Male

DRUGS (1)
  1. AVONEX [Suspect]
     Active Substance: INTERFERON BETA-1A
     Indication: MULTIPLE SCLEROSIS
     Route: 030
     Dates: start: 20010501, end: 20140824

REACTIONS (5)
  - Chest pain [Recovered/Resolved]
  - Respiratory arrest [Fatal]
  - Fall [Fatal]
  - Multiple sclerosis relapse [Recovered/Resolved]
  - Malaise [Not Recovered/Not Resolved]

NARRATIVE: CASE EVENT DATE: 2010
